FAERS Safety Report 9766590 (Version 1)
Quarter: 2013Q4

REPORT INFORMATION
  Report Type: Spontaneous
  Country: US (occurrence: US)
  Receive Date: 20131217
  Receipt Date: 20131217
  Transmission Date: 20140711
  Serious: No
  Sender: FDA-Public Use
  Company Number: US-BIOGENIDEC-2013BI117111

PATIENT
  Sex: Female

DRUGS (2)
  1. TECFIDERA [Suspect]
     Indication: MULTIPLE SCLEROSIS
  2. TECFIDERA [Suspect]
     Indication: MULTIPLE SCLEROSIS

REACTIONS (5)
  - Drug intolerance [Unknown]
  - Hypoaesthesia [Recovered/Resolved]
  - Osteoarthritis [Not Recovered/Not Resolved]
  - Sensory disturbance [Recovered/Resolved]
  - Underdose [Unknown]
